FAERS Safety Report 9109688 (Version 1)
Quarter: 2013Q1

REPORT INFORMATION
  Report Type: Spontaneous
  Country: US (occurrence: US)
  Receive Date: 20130222
  Receipt Date: 20130222
  Transmission Date: 20140127
  Serious: Yes (Hospitalization)
  Sender: FDA-Public Use
  Company Number: US-BRISTOL-MYERS SQUIBB COMPANY-17385360

PATIENT
  Age: 58 Year
  Sex: Male

DRUGS (19)
  1. COUMADIN [Suspect]
     Indication: AORTIC VALVE REPLACEMENT
     Dosage: 1978-5APR2012,2MG?9APR12-UNK,1MG
     Route: 048
     Dates: start: 1978
  2. XELODA [Suspect]
     Route: 048
     Dates: start: 20120224, end: 20120323
  3. MEPHYTON [Concomitant]
  4. LASIX [Concomitant]
  5. OXYCONTIN [Concomitant]
  6. SPIRONOLACTONE [Concomitant]
  7. ATROPINE SULFATE [Concomitant]
  8. DIPHENOXYLATE HCL [Concomitant]
  9. CIPRO [Concomitant]
  10. COMPAZINE [Concomitant]
  11. CITALOPRAM [Concomitant]
  12. ZOFRAN [Concomitant]
  13. ENDOCET [Concomitant]
  14. PEPCID [Concomitant]
  15. SYNTHROID [Concomitant]
  16. TOPROL XL [Concomitant]
  17. NORVASC [Concomitant]
  18. AVAPRO [Concomitant]
  19. ALLEGRA [Concomitant]

REACTIONS (2)
  - International normalised ratio increased [Recovered/Resolved]
  - Anaemia [Recovered/Resolved]
